FAERS Safety Report 25310143 (Version 1)
Quarter: 2025Q2

REPORT INFORMATION
  Report Type: Spontaneous
  Country: JP (occurrence: JP)
  Receive Date: 20250514
  Receipt Date: 20250514
  Transmission Date: 20250717
  Serious: Yes (Other)
  Sender: AMGEN
  Company Number: JP-AMGEN-JPNSP2025090138

PATIENT

DRUGS (2)
  1. FILGRASTIM [Suspect]
     Active Substance: FILGRASTIM
     Indication: Haematopoietic stem cell mobilisation
     Dosage: 400 MICROGRAM/SQ. METER, QD (FROM DAY 1, UNTIL THE END OF APHERESIS)
     Route: 058
  2. PEGFILGRASTIM [Suspect]
     Active Substance: PEGFILGRASTIM
     Indication: Haematopoietic stem cell mobilisation
     Route: 058

REACTIONS (13)
  - Hypocalcaemia [Unknown]
  - Interstitial lung disease [Recovered/Resolved]
  - Neuropathy peripheral [Unknown]
  - Hepatosplenomegaly [Unknown]
  - Back pain [Unknown]
  - Blood lactate dehydrogenase increased [Unknown]
  - Blood alkaline phosphatase increased [Unknown]
  - Headache [Unknown]
  - Diarrhoea [Unknown]
  - Hyperuricaemia [Unknown]
  - Pyrexia [Unknown]
  - Bone pain [Unknown]
  - Therapy partial responder [Unknown]
